FAERS Safety Report 6744266-1 (Version None)
Quarter: 2010Q2

REPORT INFORMATION
  Report Type: 
  Country: None (occurrence: None)
  Receive Date: 20100527
  Receipt Date: 20100504
  Transmission Date: 20101027
  Serious: Yes (Other)
  Sender: FDA-Public Use
  Company Number: CHPA2010SE08795

PATIENT
  Age: 88 Year
  Sex: Female

DRUGS (5)
  1. LAMISIL CREAM [Suspect]
     Indication: TINEA PEDIS
     Dosage: UNK, UNK
     Route: 061
     Dates: start: 20100127, end: 20100215
  2. BENZYLPENICILLIN [Concomitant]
     Dosage: UNK, UNK
     Dates: start: 20100120, end: 20100128
  3. DALACIN [Concomitant]
     Dosage: 150 MG, UNK
     Route: 065
     Dates: start: 20100127, end: 20100212
  4. HEMINEVRIN [Concomitant]
     Dosage: 300 MG, UNK
     Route: 065
     Dates: start: 20100126, end: 20100212
  5. KAVEPENIN [Concomitant]
     Dosage: 1 G, UNK
     Route: 065
     Dates: start: 20100206, end: 20100212

REACTIONS (3)
  - DEPRESSED MOOD [None]
  - NEUTROPENIA [None]
  - SUICIDAL IDEATION [None]
